FAERS Safety Report 9486019 (Version 2)
Quarter: 2013Q3

REPORT INFORMATION
  Report Type: Spontaneous
  Country: US (occurrence: US)
  Receive Date: 20130829
  Receipt Date: 20130829
  Transmission Date: 20140515
  Serious: Yes (Hospitalization)
  Sender: FDA-Public Use
  Company Number: US-JNJFOC-20130812903

PATIENT
  Sex: Female
  Weight: 95.26 kg

DRUGS (6)
  1. DURAGESIC [Suspect]
     Indication: PAIN
     Route: 062
  2. DURAGESIC [Suspect]
     Indication: PAIN
     Route: 062
     Dates: start: 2008
  3. DURAGESIC [Suspect]
     Indication: PAIN
     Route: 062
     Dates: start: 2008, end: 2008
  4. CELEBREX [Concomitant]
     Route: 065
  5. LISINOPRIL [Concomitant]
     Indication: BLOOD PRESSURE
     Route: 065
  6. OXYCODONE [Concomitant]
     Indication: BREAKTHROUGH PAIN
     Route: 065

REACTIONS (8)
  - Hospitalisation [Recovered/Resolved]
  - Convulsion [Recovered/Resolved]
  - Staphylococcal infection [Recovered/Resolved]
  - Hypersomnia [Recovered/Resolved]
  - Gastric disorder [Unknown]
  - Vomiting [Unknown]
  - Streptococcal infection [Recovered/Resolved]
  - Product packaging quantity issue [Unknown]
